FAERS Safety Report 7491154-1 (Version None)
Quarter: 2011Q2

REPORT INFORMATION
  Report Type: 
  Country: None (occurrence: None)
  Receive Date: 20110418
  Receipt Date: 20110418
  Transmission Date: 20111010
  Serious: Yes (Other)
  Sender: FDA-Public Use
  Company Number: None

PATIENT
  Age: 52 Year
  Sex: Female
  Weight: 63.5036 kg

DRUGS (1)
  1. HUMIRA [Suspect]
     Indication: RHEUMATOID ARTHRITIS
     Dosage: 40MG BIWEEKLY SQ
     Route: 058
     Dates: start: 20110323, end: 20110516

REACTIONS (6)
  - CONDITION AGGRAVATED [None]
  - PRODUCT LABEL ISSUE [None]
  - GASTROINTESTINAL DISORDER [None]
  - MEDICATION ERROR [None]
  - RHEUMATOID ARTHRITIS [None]
  - MALAISE [None]
